FAERS Safety Report 18962777 (Version 1)
Quarter: 2021Q1

REPORT INFORMATION
  Report Type: Spontaneous
  Country: JP (occurrence: JP)
  Receive Date: 20210303
  Receipt Date: 20210303
  Transmission Date: 20210420
  Serious: Yes (Hospitalization)
  Sender: FDA-Public Use
  Company Number: JP-TEVA-2021-JP-1885439

PATIENT
  Age: 7 Decade
  Sex: Female

DRUGS (9)
  1. PREDNISOLONE. [Suspect]
     Active Substance: PREDNISOLONE
     Indication: THROMBOTIC MICROANGIOPATHY
  2. GEMCITABINE. [Suspect]
     Active Substance: GEMCITABINE
     Indication: OVARIAN CANCER STAGE IV
     Dosage: SECOND CHEMOTHERAPY
     Route: 065
     Dates: start: 201707
  3. MYCOPHENOLATE MOFETIL. [Suspect]
     Active Substance: MYCOPHENOLATE MOFETIL
     Indication: THROMBOTIC MICROANGIOPATHY
  4. CARBOPLATIN. [Concomitant]
     Active Substance: CARBOPLATIN
     Dosage: SECOND CHEMOTHERAPY
     Route: 065
     Dates: start: 201707
  5. PREDNISOLONE. [Suspect]
     Active Substance: PREDNISOLONE
     Indication: GLOMERULAR VASCULAR DISORDER
     Route: 048
     Dates: start: 2018
  6. MYCOPHENOLATE MOFETIL. [Suspect]
     Active Substance: MYCOPHENOLATE MOFETIL
     Indication: GLOMERULAR VASCULAR DISORDER
     Route: 065
     Dates: start: 2018
  7. PACLITAXEL. [Concomitant]
     Active Substance: PACLITAXEL
     Indication: OVARIAN CANCER STAGE IV
     Dosage: POST?OPERATIVE CHEMOTHERAPY
     Route: 065
     Dates: start: 201607
  8. BEVACIZUMAB. [Suspect]
     Active Substance: BEVACIZUMAB
     Indication: OVARIAN CANCER STAGE IV
     Dosage: POST?OPERATIVE CHEMOTHERAPY
     Route: 065
     Dates: start: 201607
  9. CARBOPLATIN. [Concomitant]
     Active Substance: CARBOPLATIN
     Indication: OVARIAN CANCER STAGE IV
     Dosage: POST?OPERATIVE CHEMOTHERAPY
     Route: 065
     Dates: start: 201607

REACTIONS (5)
  - Thrombotic microangiopathy [Unknown]
  - Nephrotic syndrome [Unknown]
  - Glomerular vascular disorder [Unknown]
  - Therapy non-responder [Unknown]
  - Hypertension [Recovering/Resolving]

NARRATIVE: CASE EVENT DATE: 2018
